FAERS Safety Report 7716740-2 (Version None)
Quarter: 2011Q3

REPORT INFORMATION
  Report Type: 
  Country: None (occurrence: None)
  Receive Date: 20110829
  Receipt Date: 20110823
  Transmission Date: 20111222
  Serious: Yes (Death)
  Sender: FDA-Public Use
  Company Number: US-CELGENEUS-163-21880-11082678

PATIENT
  Sex: Male

DRUGS (7)
  1. DEXAMETHASONE [Concomitant]
     Route: 065
  2. ACYCLOVIR [Concomitant]
     Route: 065
  3. REVLIMID [Suspect]
     Dosage: 10 MILLIGRAM
     Route: 048
     Dates: start: 20100101
  4. IBUPROFEN [Concomitant]
     Route: 065
  5. WARFARIN SODIUM [Concomitant]
     Route: 065
  6. NIFEDIAC CC [Concomitant]
     Route: 065
  7. REVLIMID [Suspect]
     Dosage: 25 MILLIGRAM
     Route: 048
     Dates: start: 20090925

REACTIONS (1)
  - DEATH [None]
